FAERS Safety Report 23656116 (Version 1)
Quarter: 2024Q1

REPORT INFORMATION
  Report Type: Spontaneous
  Country: US (occurrence: US)
  Receive Date: 20240321
  Receipt Date: 20240321
  Transmission Date: 20240409
  Serious: No
  Sender: FDA-Public Use
  Company Number: US-MTPC-MTDA2024-0003665

PATIENT
  Sex: Male

DRUGS (2)
  1. RADICAVA ORS [Suspect]
     Active Substance: EDARAVONE
     Indication: Amyotrophic lateral sclerosis
     Dosage: 105 MILLIGRAM, QD OR 10 DAYS OUT OF 14 DAYS FOLLOWED BY 14 DRUG FREE DAYS
     Route: 065
     Dates: end: 202312
  2. RADICAVA ORS [Suspect]
     Active Substance: EDARAVONE
     Indication: Amyotrophic lateral sclerosis
     Dosage: 105 MILLIGRAM, QD OR 10 DAYS OUT OF 14 DAYS FOLLOWED BY 14 DRUG FREE DAYS
     Route: 065
     Dates: end: 202312

REACTIONS (1)
  - Pruritus [Unknown]
